FAERS Safety Report 16257655 (Version 1)
Quarter: 2019Q2

REPORT INFORMATION
  Report Type: Spontaneous
  Country: IE (occurrence: IE)
  Receive Date: 20190430
  Receipt Date: 20190430
  Transmission Date: 20190711
  Serious: Yes (Hospitalization, Other)
  Sender: FDA-Public Use
  Company Number: IE-JNJFOC-20190441196

PATIENT
  Age: 37 Year
  Sex: Female

DRUGS (4)
  1. CALVEPEN [Concomitant]
     Indication: MYALGIA
     Route: 048
     Dates: start: 20190404
  2. CALVEPEN [Concomitant]
     Indication: OROPHARYNGEAL PAIN
     Route: 048
     Dates: start: 20190404
  3. INFLIXIMAB, RECOMBINANT [Suspect]
     Active Substance: INFLIXIMAB
     Indication: RHEUMATOID ARTHRITIS
     Route: 042
     Dates: start: 20190409
  4. CALVEPEN [Concomitant]
     Indication: ARTHRALGIA
     Route: 048
     Dates: start: 20190404

REACTIONS (6)
  - Chest pain [Recovering/Resolving]
  - Throat tightness [Recovering/Resolving]
  - Urticaria [Recovering/Resolving]
  - Flushing [Recovering/Resolving]
  - Ocular hyperaemia [Recovering/Resolving]
  - Nausea [Recovering/Resolving]

NARRATIVE: CASE EVENT DATE: 20190409
